FAERS Safety Report 24833623 (Version 1)
Quarter: 2025Q1

REPORT INFORMATION
  Report Type: Report from Study
  Country: US (occurrence: US)
  Receive Date: 20250113
  Receipt Date: 20250113
  Transmission Date: 20250409
  Serious: Yes (Other)
  Sender: RANBAXY
  Company Number: US-SUN PHARMACEUTICAL INDUSTRIES LTD-2024R1-445525

PATIENT
  Age: 8 Year
  Sex: Male

DRUGS (5)
  1. PREDNISONE [Suspect]
     Active Substance: PREDNISONE
     Indication: Immunosuppression
     Dosage: 10 MILLIGRAM, DAILY
     Route: 065
  2. TACROLIMUS [Suspect]
     Active Substance: TACROLIMUS
     Indication: Immunosuppression
     Route: 065
  3. SIROLIMUS [Suspect]
     Active Substance: SIROLIMUS
     Route: 065
  4. SIROLIMUS [Suspect]
     Active Substance: SIROLIMUS
     Indication: Immunosuppression
  5. SIROLIMUS [Suspect]
     Active Substance: SIROLIMUS

REACTIONS (3)
  - Transplant rejection [Recovered/Resolved]
  - Inflammation [Recovered/Resolved]
  - Enterocolitis viral [Recovered/Resolved]
